FAERS Safety Report 7163627-2 (Version None)
Quarter: 2010Q4

REPORT INFORMATION
  Report Type: 
  Country: None (occurrence: None)
  Receive Date: 20101215
  Receipt Date: 20100517
  Transmission Date: 20110411
  Serious: Yes (Hospitalization)
  Sender: FDA-Public Use
  Company Number: FR-PFIZER INC-2010061270

PATIENT
  Age: 37 Year
  Sex: Female
  Weight: 43 kg

DRUGS (10)
  1. LYRICA [Suspect]
     Dosage: UNK
     Route: 048
     Dates: start: 20100416
  2. GEMZAR [Suspect]
     Dosage: 1840 MG, 1X/DAY
     Route: 042
     Dates: start: 20100412, end: 20100401
  3. OXALIPLATIN [Suspect]
     Dosage: 100 MG/M2, 1X/DAY
     Dates: start: 20100412, end: 20100401
  4. CIFLOX [Suspect]
     Dosage: 700 MG, 2X/DAY
     Route: 048
     Dates: start: 20100419
  5. NEURONTIN [Concomitant]
     Dosage: UNK
     Dates: end: 20100416
  6. OXYCONTIN [Concomitant]
  7. ACUPAN [Concomitant]
  8. PARACETAMOL [Concomitant]
  9. MODAFINIL [Concomitant]
     Dosage: UNK
     Dates: end: 20100419
  10. BACTRIM [Concomitant]

REACTIONS (6)
  - ALANINE AMINOTRANSFERASE INCREASED [None]
  - BRAIN NATRIURETIC PEPTIDE INCREASED [None]
  - CYTOLYTIC HEPATITIS [None]
  - HAEMOGLOBIN DECREASED [None]
  - HEPATOCELLULAR INJURY [None]
  - PLATELET COUNT DECREASED [None]
